FAERS Safety Report 9085392 (Version 1)
Quarter: 2013Q1

REPORT INFORMATION
  Report Type: Report from Study
  Country: US (occurrence: US)
  Receive Date: 20130131
  Receipt Date: 20130131
  Transmission Date: 20140127
  Serious: No
  Sender: FDA-Public Use
  Company Number: US-ABBOTT-12P-163-0995122-00

PATIENT
  Age: 26 Year
  Sex: Female

DRUGS (4)
  1. HUMIRA [Suspect]
     Indication: COLITIS ULCERATIVE
     Dates: start: 20120806
  2. APRISO [Concomitant]
     Indication: COLITIS ULCERATIVE
     Dosage: 4 TABLETS DAILY
     Route: 048
  3. ORCEPTIA [Concomitant]
     Indication: CONTRACEPTION
     Dosage: 1 TABLET DAILY
     Route: 048
  4. VITAMINS [Concomitant]
     Indication: VITAMIN SUPPLEMENTATION
     Dosage: DAILY
     Route: 048

REACTIONS (1)
  - Sinusitis [Recovered/Resolved]
